FAERS Safety Report 7102428-8 (Version None)
Quarter: 2010Q4

REPORT INFORMATION
  Report Type: 
  Country: None (occurrence: None)
  Receive Date: 20101115
  Receipt Date: 20101105
  Transmission Date: 20110411
  Serious: No
  Sender: FDA-Public Use
  Company Number: US-BIOGENIDEC-2010BI039568

PATIENT
  Age: 68 Year
  Sex: Female

DRUGS (2)
  1. TYSABRI [Suspect]
     Indication: MULTIPLE SCLEROSIS
     Route: 042
     Dates: start: 20040101, end: 20050201
  2. TYSABRI [Suspect]
     Route: 042
     Dates: start: 20060915

REACTIONS (3)
  - MULTIPLE SCLEROSIS RELAPSE [None]
  - NASOPHARYNGITIS [None]
  - SEASONAL ALLERGY [None]
